FAERS Safety Report 12886967 (Version 1)
Quarter: 2016Q4

REPORT INFORMATION
  Report Type: Spontaneous
  Country: US (occurrence: US)
  Receive Date: 20161026
  Receipt Date: 20161026
  Transmission Date: 20170207
  Serious: Yes (Hospitalization, Other)
  Sender: FDA-Public Use
  Company Number: US-009507513-1010USA01162

PATIENT
  Sex: Female
  Weight: 79.38 kg

DRUGS (6)
  1. FOSAMAX [Suspect]
     Active Substance: ALENDRONATE SODIUM
     Indication: OSTEOPENIA
     Dosage: 10 MG, QD
     Route: 048
     Dates: start: 199508
  2. FOSAMAX [Suspect]
     Active Substance: ALENDRONATE SODIUM
     Indication: OSTEOPOROSIS
     Dosage: 70 MG, QW
     Route: 048
     Dates: start: 20010612, end: 20080619
  3. METICORTEN [Concomitant]
     Active Substance: PREDNISONE
     Dosage: 2.5-5
     Route: 048
     Dates: start: 1984
  4. METICORTEN [Concomitant]
     Active Substance: PREDNISONE
     Dates: start: 1984
  5. CALCIUM (UNSPECIFIED) (+) VITAMIN D (UNSPECIFIED) [Concomitant]
     Active Substance: CALCIUM CARBONATE\VITAMIN D
     Dosage: 1200 MG, UNK
     Dates: start: 1995
  6. MK-9278 [Concomitant]
     Active Substance: VITAMINS
     Dates: start: 1995

REACTIONS (65)
  - Femur fracture [Recovered/Resolved]
  - Fall [Unknown]
  - Osteoarthritis [Not Recovered/Not Resolved]
  - Urinary tract infection [Unknown]
  - Urinary tract infection [Unknown]
  - Anxiety [Recovering/Resolving]
  - Hypoacusis [Unknown]
  - Skin cancer [Unknown]
  - Muscle strain [Unknown]
  - Cough [Unknown]
  - Haemoglobin decreased [Unknown]
  - Fall [Unknown]
  - Spondylolisthesis [Unknown]
  - Pain [Recovering/Resolving]
  - Basal cell carcinoma [Unknown]
  - Actinic keratosis [Unknown]
  - Nail avulsion [Unknown]
  - Sinus disorder [Unknown]
  - Polyp [Unknown]
  - Bursitis [Unknown]
  - Limb injury [Unknown]
  - Abdominal discomfort [Unknown]
  - Lumbosacral radiculopathy [Unknown]
  - Nasal septum deviation [Unknown]
  - Stress fracture [Recovered/Resolved]
  - Low turnover osteopathy [Unknown]
  - Gastrooesophageal reflux disease [Unknown]
  - Cardiomegaly [Unknown]
  - Tendonitis [Unknown]
  - Spinal column stenosis [Unknown]
  - Intervertebral disc degeneration [Unknown]
  - Chest injury [Unknown]
  - Cyst [Unknown]
  - Impaired healing [Unknown]
  - Device failure [Unknown]
  - Bronchitis chronic [Unknown]
  - Drug hypersensitivity [Unknown]
  - Groin pain [Unknown]
  - Fall [Unknown]
  - Gait disturbance [Unknown]
  - Dyspepsia [Unknown]
  - Gastrooesophageal reflux disease [Unknown]
  - Ankle fracture [Unknown]
  - Intervertebral disc protrusion [Unknown]
  - Intervertebral disc degeneration [Unknown]
  - Melanocytic naevus [Unknown]
  - Erythema [Unknown]
  - Musculoskeletal pain [Unknown]
  - Respiratory disorder [Unknown]
  - Femur fracture [Recovered/Resolved]
  - Back pain [Recovered/Resolved]
  - Gastric ulcer [Unknown]
  - Radiculopathy [Unknown]
  - Bursitis [Unknown]
  - Myocardial infarction [Unknown]
  - Sinus polyp [Unknown]
  - Flushing [Unknown]
  - Pneumonia [Unknown]
  - Foot fracture [Unknown]
  - Adverse drug reaction [Unknown]
  - Dermal cyst [Unknown]
  - Scoliosis [Unknown]
  - Upper-airway cough syndrome [Unknown]
  - Back pain [Not Recovered/Not Resolved]
  - Vitiligo [Unknown]

NARRATIVE: CASE EVENT DATE: 199607
